FAERS Safety Report 21934420 (Version 3)
Quarter: 2023Q1

REPORT INFORMATION
  Report Type: Spontaneous
  Country: CO (occurrence: CO)
  Receive Date: 20230201
  Receipt Date: 20230301
  Transmission Date: 20230417
  Serious: No
  Sender: FDA-Public Use
  Company Number: CO-PFIZER INC-PV202300014461

PATIENT
  Age: 6 Year
  Sex: Female

DRUGS (1)
  1. GENOTROPIN [Suspect]
     Active Substance: SOMATROPIN
     Dosage: UNK
     Route: 058
     Dates: start: 202009

REACTIONS (4)
  - Device use issue [Unknown]
  - Expired device used [Unknown]
  - Accidental overdose [Unknown]
  - Device information output issue [Unknown]

NARRATIVE: CASE EVENT DATE: 20221201
